FAERS Safety Report 5999171-5 (Version None)
Quarter: 2008Q4

REPORT INFORMATION
  Report Type: 
  Country: None (occurrence: None)
  Receive Date: 20081215
  Receipt Date: 20080731
  Transmission Date: 20090506
  Serious: No
  Sender: FDA-Public Use
  Company Number: US-AMGEN-KDL297497

PATIENT
  Sex: Female
  Weight: 88.5 kg

DRUGS (8)
  1. ENBREL [Suspect]
     Indication: RHEUMATOID ARTHRITIS
     Route: 058
  2. METHOTREXATE [Concomitant]
     Dates: end: 20080601
  3. PLAQUENIL [Concomitant]
  4. PREDNISONE TAB [Concomitant]
  5. LISINOPRIL [Concomitant]
  6. OMEPRAZOLE [Concomitant]
  7. LEVOTHYROXINE SODIUM [Concomitant]
  8. METOPROLOL [Concomitant]

REACTIONS (2)
  - CD8 LYMPHOCYTES DECREASED [None]
  - WHITE BLOOD CELL COUNT DECREASED [None]
